FAERS Safety Report 21016633 (Version 1)
Quarter: 2022Q2

REPORT INFORMATION
  Report Type: Spontaneous
  Country: TW (occurrence: TW)
  Receive Date: 20220628
  Receipt Date: 20220628
  Transmission Date: 20220721
  Serious: Yes (Hospitalization, Other)
  Sender: FDA-Public Use
  Company Number: TW-TERSERA THERAPEUTICS LLC-2022TRS002634

PATIENT

DRUGS (4)
  1. ERGOMAR [Suspect]
     Active Substance: ERGOTAMINE TARTRATE
     Indication: Migraine
     Dosage: 1 MG
     Route: 065
  2. ERGOMAR [Suspect]
     Active Substance: ERGOTAMINE TARTRATE
     Dosage: 1 MG
     Route: 065
  3. COBICISTAT\DARUNAVIR ETHANOLATE [Suspect]
     Active Substance: COBICISTAT\DARUNAVIR ETHANOLATE
     Indication: HIV infection
     Dosage: 800/150 MG ONCE DAILY
     Route: 065
  4. DOLUTEGRAVIR [Concomitant]
     Active Substance: DOLUTEGRAVIR
     Indication: HIV infection
     Dosage: 50 MG, QD
     Route: 065

REACTIONS (4)
  - Cardiogenic shock [Recovered/Resolved]
  - Arteriospasm coronary [Recovered/Resolved]
  - Ergot poisoning [Unknown]
  - Drug interaction [Unknown]
